FAERS Safety Report 19941950 (Version 1)
Quarter: 2021Q4

REPORT INFORMATION
  Report Type: Other
  Country: ES (occurrence: ES)
  Receive Date: 20211012
  Receipt Date: 20211012
  Transmission Date: 20220303
  Serious: Yes (Death, Other)
  Sender: FDA-Public Use
  Company Number: ES-ROCHE-2929698

PATIENT

DRUGS (2)
  1. OSELTAMIVIR [Suspect]
     Active Substance: OSELTAMIVIR
     Indication: Influenza
     Route: 065
  2. OSELTAMIVIR [Suspect]
     Active Substance: OSELTAMIVIR
     Indication: Influenza

REACTIONS (6)
  - Death [Fatal]
  - Rhabdomyolysis [Unknown]
  - Myocarditis [Unknown]
  - Guillain-Barre syndrome [Unknown]
  - Encephalitis [Unknown]
  - Septic shock [Unknown]
